FAERS Safety Report 6342194-7 (Version None)
Quarter: 2009Q3

REPORT INFORMATION
  Report Type: 
  Country: None (occurrence: None)
  Receive Date: 20090904
  Receipt Date: 20090904
  Transmission Date: 20100115
  Serious: Yes (Death)
  Sender: FDA-Public Use
  Company Number: None

PATIENT
  Age: 84 Year
  Sex: Female
  Weight: 57.6068 kg

DRUGS (3)
  1. PLAVIX [Suspect]
     Indication: DIZZINESS
     Dosage: 75 MG DAILY PO
     Route: 048
     Dates: start: 20070410, end: 20090327
  2. PLAVIX [Suspect]
     Indication: ISCHAEMIA
     Dosage: 75 MG DAILY PO
     Route: 048
     Dates: start: 20070410, end: 20090327
  3. ASPIRIN [Suspect]
     Indication: SUPPLEMENTATION THERAPY
     Dosage: 81 MG DAILY PO
     Route: 048

REACTIONS (4)
  - COMA [None]
  - FALL [None]
  - LOSS OF CONSCIOUSNESS [None]
  - TRAUMATIC HAEMORRHAGE [None]
